FAERS Safety Report 7042169-9 (Version None)
Quarter: 2010Q4

REPORT INFORMATION
  Report Type: 
  Country: None (occurrence: None)
  Receive Date: 20101013
  Receipt Date: 20090916
  Transmission Date: 20110411
  Serious: No
  Sender: FDA-Public Use
  Company Number: US-ASTRAZENECA-2009SE13544

PATIENT
  Age: 64 Year
  Sex: Female
  Weight: 98.9 kg

DRUGS (3)
  1. SYMBICORT [Suspect]
     Indication: ASTHMA
     Dosage: 640 MCG BID
     Route: 055
  2. PREDNISONE TAB [Concomitant]
  3. SPIRIVA [Concomitant]

REACTIONS (2)
  - BLOODY AIRWAY DISCHARGE [None]
  - OROPHARYNGEAL PAIN [None]
